FAERS Safety Report 4338355-9 (Version None)
Quarter: 2004Q2

REPORT INFORMATION
  Report Type: 
  Country: None (occurrence: None)
  Receive Date: 20040409
  Receipt Date: 20040402
  Transmission Date: 20050107
  Serious: Yes (Hospitalization)
  Sender: FDA-Public Use
  Company Number: 2004AP01778

PATIENT
  Age: 54 Year
  Sex: Male

DRUGS (14)
  1. IRESSA [Suspect]
     Indication: LUNG ADENOCARCINOMA
     Dosage: 250 MG DAILY PO
     Route: 048
     Dates: start: 20030203, end: 20030314
  2. IRESSA [Suspect]
     Indication: LUNG ADENOCARCINOMA
     Dosage: 250 MG DAILY PO
     Route: 048
     Dates: start: 20031006, end: 20031021
  3. AMLODIPINE [Concomitant]
  4. NU LOTAN [Concomitant]
  5. LENDORM [Concomitant]
  6. ACINON [Concomitant]
  7. NAIXAN [Concomitant]
  8. MUCOSTA [Concomitant]
  9. GLIMICRON [Concomitant]
  10. MARUYAMA VACCINE [Concomitant]
  11. RADIATION THERAPY [Concomitant]
  12. PACLITAXEL [Concomitant]
  13. CARBOPLATIN [Concomitant]
  14. PICIBANIL [Concomitant]

REACTIONS (5)
  - LUNG NEOPLASM MALIGNANT [None]
  - MALIGNANT NEOPLASM PROGRESSION [None]
  - PHARYNGOLARYNGEAL PAIN [None]
  - PNEUMONIA BACTERIAL [None]
  - RASH PRURITIC [None]
